FAERS Safety Report 10901714 (Version 2)
Quarter: 2015Q3

REPORT INFORMATION
  Report Type: Spontaneous
  Country: US (occurrence: US)
  Receive Date: 20150310
  Receipt Date: 20150915
  Transmission Date: 20151125
  Serious: Yes (Hospitalization)
  Sender: FDA-Public Use
  Company Number: US-BAYER-2015-035472

PATIENT
  Age: 26 Year
  Sex: Female
  Weight: 71.66 kg

DRUGS (2)
  1. TRAMADOL. [Concomitant]
     Active Substance: TRAMADOL
  2. MIRENA [Suspect]
     Active Substance: LEVONORGESTREL
     Indication: CONTRACEPTION
     Dosage: 20 MCG/24HR, CONT
     Route: 015
     Dates: start: 20130129, end: 20130328

REACTIONS (5)
  - Injury [None]
  - Pelvic pain [None]
  - Abdominal pain lower [None]
  - Device dislocation [None]
  - Device difficult to use [None]

NARRATIVE: CASE EVENT DATE: 20130201
